FAERS Safety Report 9956493 (Version 1)
Quarter: 2014Q1

REPORT INFORMATION
  Report Type: Report from Study
  Country: US (occurrence: US)
  Receive Date: 20140304
  Receipt Date: 20140304
  Transmission Date: 20141002
  Serious: No
  Sender: FDA-Public Use
  Company Number: US-ABBVIE-13P-163-1100430-00

PATIENT
  Age: 29 Year
  Sex: Female

DRUGS (3)
  1. HUMIRA [Suspect]
     Indication: CROHN^S DISEASE
     Dosage: 40MG X4 SC INJ
     Route: 058
     Dates: start: 20130521, end: 20130521
  2. HUMIRA [Suspect]
     Dosage: 40MG X2 SC INJ
     Route: 058
     Dates: start: 20130604, end: 20130604
  3. HUMIRA [Suspect]
     Route: 058
     Dates: start: 20130618

REACTIONS (2)
  - Dyspepsia [Recovering/Resolving]
  - Dysphagia [Not Recovered/Not Resolved]
